FAERS Safety Report 7376312-9 (Version None)
Quarter: 2011Q1

REPORT INFORMATION
  Report Type: 
  Country: None (occurrence: None)
  Receive Date: 20110325
  Receipt Date: 20110320
  Transmission Date: 20110831
  Serious: Yes (Hospitalization)
  Sender: FDA-Public Use
  Company Number: AU-BRISTOL-MYERS SQUIBB COMPANY-15540164

PATIENT
  Age: 41 Year
  Sex: Male

DRUGS (11)
  1. OXAZEPAM [Concomitant]
     Route: 048
     Dates: start: 20110207
  2. BMS754807 [Suspect]
     Indication: NEOPLASM
     Dosage: INTERRUPTED ON 10MAR11.
     Route: 048
     Dates: start: 20110204
  3. CARBOPLATIN [Suspect]
     Indication: NEOPLASM
     Dosage: INT ON 07MAR11 1075MG
     Route: 042
     Dates: start: 20110203
  4. DOXEPIN [Concomitant]
     Dates: start: 20110121
  5. COLOXYL [Concomitant]
     Dates: start: 20110110
  6. PRILOSEC [Concomitant]
     Dates: start: 20110211
  7. PACLITAXEL [Suspect]
     Indication: NEOPLASM
     Dosage: INT ON 07MAR11 408MG
     Route: 042
     Dates: start: 20110203
  8. FENTANYL [Concomitant]
     Route: 061
     Dates: start: 20110110
  9. FENTANYL-100 [Concomitant]
     Dates: start: 20110110
  10. OXYCODONE [Concomitant]
     Dosage: OXYCODONE IR ON 10DEC10-18JAN11 18JAN11-C 17JAN11-C
     Dates: start: 20101218
  11. LORAZEPAM [Concomitant]
     Dates: start: 20110203

REACTIONS (3)
  - HYPERGLYCAEMIA [None]
  - NAUSEA [None]
  - VOMITING [None]
